FAERS Safety Report 7941740-7 (Version None)
Quarter: 2011Q4

REPORT INFORMATION
  Report Type: 
  Country: None (occurrence: None)
  Receive Date: 20111128
  Receipt Date: 20111003
  Transmission Date: 20120403
  Serious: No
  Sender: FDA-Public Use
  Company Number: US-BAYER-2011-095577

PATIENT

DRUGS (3)
  1. ALEVE (CAPLET) [Suspect]
  2. ALEVE (CAPLET) [Suspect]
     Indication: PAIN
     Dosage: 2 DF, UNK
     Route: 048
  3. HYPNOTICS AND SEDATIVES [Suspect]

REACTIONS (2)
  - PAIN [None]
  - INSOMNIA [None]
